FAERS Safety Report 7183921-9 (Version None)
Quarter: 2010Q4

REPORT INFORMATION
  Report Type: 
  Country: None (occurrence: None)
  Receive Date: 20101222
  Receipt Date: 20101213
  Transmission Date: 20110411
  Serious: Yes (Other)
  Sender: FDA-Public Use
  Company Number: US-ROCHE-748049

PATIENT
  Sex: Female

DRUGS (1)
  1. BONIVA [Suspect]
     Route: 065
     Dates: start: 20080101, end: 20091201

REACTIONS (7)
  - ANKLE FRACTURE [None]
  - BONE DENSITY DECREASED [None]
  - FALL [None]
  - FOOT FRACTURE [None]
  - HAND FRACTURE [None]
  - LOWER LIMB FRACTURE [None]
  - WRIST FRACTURE [None]
